FAERS Safety Report 25777939 (Version 1)
Quarter: 2025Q3

REPORT INFORMATION
  Report Type: Spontaneous
  Country: MX (occurrence: MX)
  Receive Date: 20250909
  Receipt Date: 20250909
  Transmission Date: 20251020
  Serious: Yes (Disabling, Other)
  Sender: ROCHE
  Company Number: MX-ROCHE-10000381689

PATIENT
  Age: 40 Year
  Sex: Male
  Weight: 68 kg

DRUGS (1)
  1. RITUXIMAB [Suspect]
     Active Substance: RITUXIMAB
     Indication: Multiple sclerosis
     Route: 042
     Dates: start: 2023, end: 202503

REACTIONS (5)
  - Off label use [Unknown]
  - Shock [Not Recovered/Not Resolved]
  - Gait disturbance [Not Recovered/Not Resolved]
  - Asthenia [Not Recovered/Not Resolved]
  - Speech disorder [Not Recovered/Not Resolved]

NARRATIVE: CASE EVENT DATE: 20230101
